FAERS Safety Report 9397126 (Version 3)
Quarter: 2013Q3

REPORT INFORMATION
  Report Type: Spontaneous
  Country: US (occurrence: US)
  Receive Date: 20130712
  Receipt Date: 20130827
  Transmission Date: 20140515
  Serious: Yes (Other)
  Sender: FDA-Public Use
  Company Number: US-PFIZER INC-2013202897

PATIENT
  Age: 61 Year
  Sex: Male
  Weight: 75.28 kg

DRUGS (12)
  1. SUTENT [Suspect]
     Indication: RENAL CELL CARCINOMA
     Dosage: 16 DOSES
     Dates: start: 201306
  2. SUTENT [Suspect]
     Dosage: 37.5 MG, 1X/DAY
     Dates: start: 20130621, end: 20130708
  3. SUTENT [Suspect]
     Dosage: 50 MG, ALTERNATE DAY
     Dates: start: 20130712, end: 20130718
  4. SUTENT [Suspect]
     Dosage: 50 MG A DAY FOLLOWED BY TWO DAYS OFF
     Dates: start: 20130719
  5. SUTENT [Suspect]
     Dosage: 37.5 MG, CYCLIC (4 WEEKS ON, 2 WEEKS OFF)
  6. CENTRUM SILVER MULTIVITAMIN [Concomitant]
     Dosage: UNK
  7. FISH OIL [Concomitant]
     Dosage: UNK
  8. PHENERGAN [Concomitant]
     Dosage: UNK
  9. ATIVAN [Concomitant]
     Dosage: UNK
  10. AMLODIPINE [Concomitant]
     Dosage: 5 MG, 1X/DAY
  11. LISINOPRIL [Concomitant]
     Dosage: 20 MG, 1X/DAY
  12. ZOFRAN [Concomitant]
     Dosage: UNK

REACTIONS (19)
  - Blood pressure increased [Unknown]
  - Jaundice [Recovered/Resolved]
  - Liver disorder [Recovering/Resolving]
  - Alanine aminotransferase increased [Unknown]
  - Aspartate aminotransferase increased [Unknown]
  - Blood bilirubin increased [Unknown]
  - Abdominal pain [Unknown]
  - Pancreatic disorder [Unknown]
  - Gallbladder disorder [Unknown]
  - Blood urea nitrogen/creatinine ratio increased [Unknown]
  - Decreased appetite [Unknown]
  - Nausea [Unknown]
  - Dysgeusia [Not Recovered/Not Resolved]
  - Fatigue [Not Recovered/Not Resolved]
  - Nasal congestion [Unknown]
  - Insomnia [Unknown]
  - Constipation [Recovered/Resolved]
  - Abdominal pain upper [Recovered/Resolved]
  - Toothache [Recovered/Resolved]
